FAERS Safety Report 8402847-3 (Version None)
Quarter: 2012Q2

REPORT INFORMATION
  Report Type: 
  Country: None (occurrence: None)
  Receive Date: 20120529
  Receipt Date: 20120517
  Transmission Date: 20120825
  Serious: Yes (Other)
  Sender: FDA-Public Use
  Company Number: UCM201205-000045

PATIENT
  Age: 44 Year
  Sex: Male

DRUGS (4)
  1. METHADONE HCL [Suspect]
     Dosage: 160 MG PER DAY, 250 MG
  2. PAROXETINE [Suspect]
     Dosage: 20 MG PER DAY
  3. BISOPROLOL FUMARATE [Suspect]
  4. NEBIVOLOL [Suspect]

REACTIONS (4)
  - BRADYCARDIA [None]
  - TORSADE DE POINTES [None]
  - VENTRICULAR TACHYCARDIA [None]
  - SYNCOPE [None]
